FAERS Safety Report 17478240 (Version 1)
Quarter: 2020Q1

REPORT INFORMATION
  Report Type: Spontaneous
  Country: US (occurrence: US)
  Receive Date: 20200228
  Receipt Date: 20200228
  Transmission Date: 20200409
  Serious: Yes (Hospitalization)
  Sender: FDA-Public Use
  Company Number: US-VERTEX PHARMACEUTICALS-2020-003804

PATIENT
  Age: 18 Year
  Sex: Female

DRUGS (6)
  1. BEDAQUILINE [Suspect]
     Active Substance: BEDAQUILINE
     Indication: PRODUCT USED FOR UNKNOWN INDICATION
     Route: 065
  2. ARIKAYCE [Suspect]
     Active Substance: AMIKACIN
     Indication: PRODUCT USED FOR UNKNOWN INDICATION
     Route: 065
  3. TRIKAFTA [Suspect]
     Active Substance: ELEXACAFTOR\IVACAFTOR\TEZACAFTOR
     Indication: CYSTIC FIBROSIS
     Route: 048
  4. TRIKAFTA [Suspect]
     Active Substance: ELEXACAFTOR\IVACAFTOR\TEZACAFTOR
     Dosage: FULL DOSE
     Route: 048
  5. CLOFAZIMINE [Suspect]
     Active Substance: CLOFAZIMINE
     Indication: PRODUCT USED FOR UNKNOWN INDICATION
     Route: 065
  6. CEFOXITIN [Suspect]
     Active Substance: CEFOXITIN SODIUM
     Indication: PRODUCT USED FOR UNKNOWN INDICATION
     Route: 065

REACTIONS (1)
  - Drug reaction with eosinophilia and systemic symptoms [Unknown]
